FAERS Safety Report 4387710-X (Version None)
Quarter: 2004Q2

REPORT INFORMATION
  Report Type: 
  Country: None (occurrence: None)
  Receive Date: 20040625
  Receipt Date: 20040611
  Transmission Date: 20050107
  Serious: Yes (Hospitalization, Disabling)
  Sender: FDA-Public Use
  Company Number: 2003-BP-06680BP

PATIENT
  Age: 64 Year
  Sex: Male
  Weight: 67.1 kg

DRUGS (14)
  1. MICARDIS [Suspect]
     Indication: CEREBROVASCULAR ACCIDENT PROPHYLAXIS
     Dosage: PO
     Route: 048
     Dates: start: 20030404
  2. MICARDIS [Suspect]
     Indication: MYOCARDIAL INFARCTION
     Dosage: PO
     Route: 048
     Dates: start: 20030404
  3. MICARDIS [Suspect]
     Indication: PROPHYLAXIS
     Dosage: PO
     Route: 048
     Dates: start: 20030404
  4. RAMIPRIL [Suspect]
     Indication: CEREBROVASCULAR ACCIDENT PROPHYLAXIS
     Dosage: PO
     Route: 048
     Dates: start: 20030404
  5. RAMIPRIL [Suspect]
     Indication: MYOCARDIAL INFARCTION
     Dosage: PO
     Route: 048
     Dates: start: 20030404
  6. RAMIPRIL [Suspect]
     Indication: PROPHYLAXIS
     Dosage: PO
     Route: 048
     Dates: start: 20030404
  7. ASPIRIN [Concomitant]
  8. SILDENAFIL [Concomitant]
  9. SIMVASTATIN [Concomitant]
  10. RANITIDINE [Concomitant]
  11. REGULAR INSULIN [Concomitant]
  12. GLYBURIDE [Concomitant]
  13. PHENYTOIN [Concomitant]
  14. LISINOPRIL [Concomitant]

REACTIONS (4)
  - DIZZINESS [None]
  - FALL [None]
  - HEAD INJURY [None]
  - SUBARACHNOID HAEMORRHAGE [None]
